FAERS Safety Report 5745919-4 (Version None)
Quarter: 2008Q2

REPORT INFORMATION
  Report Type: 
  Country: None (occurrence: None)
  Receive Date: 20080520
  Receipt Date: 20080512
  Transmission Date: 20081010
  Serious: Yes (Death)
  Sender: FDA-Public Use
  Company Number: 163-21880-08050595

PATIENT
  Sex: Male

DRUGS (1)
  1. REVLIMID [Suspect]
     Indication: MYELODYSPLASTIC SYNDROME
     Dosage: 5 MG, 1 IN 1 D, ORAL
     Route: 048
     Dates: start: 20071210, end: 20080201

REACTIONS (7)
  - DEHYDRATION [None]
  - DIARRHOEA [None]
  - DRY MOUTH [None]
  - DYSPNOEA [None]
  - DYSURIA [None]
  - MUSCLE SPASMS [None]
  - PHARYNGOLARYNGEAL PAIN [None]
